FAERS Safety Report 16448469 (Version 1)
Quarter: 2019Q2

REPORT INFORMATION
  Report Type: Report from Study
  Country: None (occurrence: US)
  Receive Date: 20190619
  Receipt Date: 20190619
  Transmission Date: 20190711
  Serious: Yes (Hospitalization)
  Sender: FDA-Public Use
  Company Number: US-ABBVIE-19S-163-2825075-00

PATIENT
  Age: 81 Year
  Sex: Male
  Weight: 61.29 kg

DRUGS (1)
  1. DUOPA [Suspect]
     Active Substance: CARBIDOPA\LEVODOPA
     Indication: PRODUCT USED FOR UNKNOWN INDICATION
     Route: 050
     Dates: start: 20151228

REACTIONS (6)
  - Device breakage [Recovered/Resolved]
  - Device leakage [Unknown]
  - Hip fracture [Recovered/Resolved]
  - Hip surgery [Recovering/Resolving]
  - Tremor [Not Recovered/Not Resolved]
  - Fall [Recovered/Resolved]

NARRATIVE: CASE EVENT DATE: 20190522
